FAERS Safety Report 7885746-5 (Version None)
Quarter: 2011Q4

REPORT INFORMATION
  Report Type: 
  Country: None (occurrence: None)
  Receive Date: 20111102
  Receipt Date: 20111024
  Transmission Date: 20120403
  Serious: Yes (Other)
  Sender: FDA-Public Use
  Company Number: US-ASTRAZENECA-2011SE64176

PATIENT
  Age: 77 Year
  Sex: Female

DRUGS (1)
  1. CRESTOR [Suspect]
     Route: 048

REACTIONS (9)
  - FALL [None]
  - HIP FRACTURE [None]
  - PAIN [None]
  - DISABILITY [None]
  - UPPER LIMB FRACTURE [None]
  - EMOTIONAL DISTRESS [None]
  - INSOMNIA [None]
  - PARALYSIS [None]
  - ABASIA [None]
